FAERS Safety Report 21986478 (Version 1)
Quarter: 2023Q1

REPORT INFORMATION
  Report Type: Spontaneous
  Country: US (occurrence: US)
  Receive Date: 20230213
  Receipt Date: 20230213
  Transmission Date: 20230418
  Serious: No
  Sender: FDA-Public Use
  Company Number: US-GE HEALTHCARE-2022CSU008896

PATIENT
  Age: 75 Year
  Sex: Female

DRUGS (13)
  1. DATSCAN [Suspect]
     Active Substance: IODINE\IOFLUPANE I-123
     Indication: Diagnostic procedure
     Dosage: UNK UNK, SINGLE
     Route: 065
  2. DATSCAN [Suspect]
     Active Substance: IODINE\IOFLUPANE I-123
     Indication: Tremor
  3. ASPIRIN [Concomitant]
     Active Substance: ASPIRIN
     Dosage: 81 MG
     Route: 048
  4. ATORVASTATIN [Concomitant]
     Active Substance: ATORVASTATIN
     Dosage: 80 UNK
     Route: 048
  5. CARBIDOPA [Concomitant]
     Active Substance: CARBIDOPA
     Dosage: 25 MG
     Route: 048
  6. CARBIDOPA AND LEVODOPA [Concomitant]
     Active Substance: CARBIDOPA\LEVODOPA
     Dosage: UNK, TID
     Route: 048
  7. CARVEDILOL [Concomitant]
     Active Substance: CARVEDILOL
     Dosage: 6.25 MG
  8. ESCITALOPRAM [Concomitant]
     Active Substance: ESCITALOPRAM OXALATE
     Dosage: 20 MG
     Route: 048
  9. FAMOTIDINE [Concomitant]
     Active Substance: FAMOTIDINE
     Dosage: 20 MG
     Route: 048
  10. LISINOPRIL [Concomitant]
     Active Substance: LISINOPRIL
     Dosage: 5 MG
     Route: 048
  11. ONDANSETRON [Concomitant]
     Active Substance: ONDANSETRON
     Dosage: 4 MG
     Route: 048
  12. RASAGILINE [Concomitant]
     Active Substance: RASAGILINE
     Dosage: 0.5 MG, QD
     Route: 048
  13. ROPINIROLE [Concomitant]
     Active Substance: ROPINIROLE
     Dosage: 2 MG, EXTENDED RELEASE Q HS
     Route: 048

REACTIONS (2)
  - Radioisotope scan abnormal [Recovered/Resolved]
  - No adverse event [Recovered/Resolved]
